FAERS Safety Report 23769916 (Version 1)
Quarter: 2024Q2

REPORT INFORMATION
  Report Type: Spontaneous
  Country: US (occurrence: US)
  Receive Date: 20240422
  Receipt Date: 20240422
  Transmission Date: 20240716
  Serious: No
  Sender: FDA-Public Use
  Company Number: US-009507513-2404USA005374

PATIENT
  Age: 33 Year
  Sex: Male

DRUGS (3)
  1. NOXAFIL [Suspect]
     Active Substance: POSACONAZOLE
     Indication: Disseminated coccidioidomycosis
     Route: 048
  2. OLOROFIM [Concomitant]
     Active Substance: OLOROFIM
     Indication: Coccidioidomycosis
  3. MICAFUNGIN [Concomitant]
     Active Substance: MICAFUNGIN SODIUM
     Indication: Coccidioidomycosis

REACTIONS (1)
  - Product use in unapproved indication [Unknown]
